FAERS Safety Report 7503017-3 (Version None)
Quarter: 2011Q2

REPORT INFORMATION
  Report Type: 
  Country: None (occurrence: None)
  Receive Date: 20110525
  Receipt Date: 20101001
  Transmission Date: 20111010
  Serious: No
  Sender: FDA-Public Use
  Company Number: US-NOVEN-ALL1-2010-05179

PATIENT
  Sex: Male

DRUGS (4)
  1. DAYTRANA [Suspect]
     Dosage: 10 MG, 1X/DAY:QD
     Route: 062
  2. SINGULAIR [Concomitant]
     Dosage: UNK MG, 1X/DAY:QD
     Route: 048
  3. NASONEX [Concomitant]
     Dosage: UNK UG, 1X/DAY:QD
     Route: 045
  4. LORATADINE [Concomitant]
     Dosage: UNK MG, 1X/DAY:QD
     Route: 048

REACTIONS (6)
  - APPLICATION SITE ERYTHEMA [None]
  - INCORRECT DRUG ADMINISTRATION DURATION [None]
  - PRODUCT QUALITY ISSUE [None]
  - WRONG TECHNIQUE IN DRUG USAGE PROCESS [None]
  - APPLICATION SITE REACTION [None]
  - DRUG EFFECT DELAYED [None]
